FAERS Safety Report 5996648-3 (Version None)
Quarter: 2008Q4

REPORT INFORMATION
  Report Type: 
  Country: None (occurrence: None)
  Receive Date: 20081210
  Receipt Date: 20081126
  Transmission Date: 20090506
  Serious: Yes (Hospitalization)
  Sender: FDA-Public Use
  Company Number: B0549254A

PATIENT
  Age: 52 Year
  Sex: Male

DRUGS (2)
  1. IBUPROFEN [Suspect]
     Indication: HEADACHE
  2. COREG [Suspect]
     Dosage: 6.23 MG/ TWICE PER DAY

REACTIONS (8)
  - BLINDNESS [None]
  - BREATH ODOUR [None]
  - COMA [None]
  - HYPERSENSITIVITY [None]
  - SCAR [None]
  - SEPSIS [None]
  - STEVENS-JOHNSON SYNDROME [None]
  - TOXIC EPIDERMAL NECROLYSIS [None]
